FAERS Safety Report 21680075 (Version 1)
Quarter: 2022Q4

REPORT INFORMATION
  Report Type: Spontaneous
  Country: US (occurrence: US)
  Receive Date: 20221205
  Receipt Date: 20221205
  Transmission Date: 20230113
  Serious: Yes (Other)
  Sender: FDA-Public Use
  Company Number: US-MLMSERVICE-20221115-3919997-2

PATIENT
  Age: 60 Year
  Sex: Male

DRUGS (2)
  1. MOXIFLOXACIN [Suspect]
     Active Substance: MOXIFLOXACIN
     Indication: Prophylaxis
     Dosage: APPROXIMATELY 0.2 ML OF UNDILUTED WAS INSTILLED INTO THE ANTERIOR CHAMBER BETWEEN ADJACENT CORNEAL S
  2. MOXIFLOXACIN [Suspect]
     Active Substance: MOXIFLOXACIN
     Dosage: APPROXIMATELY 0.1 ML

REACTIONS (6)
  - Corneal striae [Unknown]
  - Retinal detachment [Unknown]
  - Toxic anterior segment syndrome [Unknown]
  - Corneal decompensation [Unknown]
  - Corneal oedema [Unknown]
  - Incorrect route of product administration [Unknown]
